FAERS Safety Report 15470472 (Version 2)
Quarter: 2022Q3

REPORT INFORMATION
  Report Type: Spontaneous
  Country: NL (occurrence: NL)
  Receive Date: 20181005
  Receipt Date: 20220706
  Transmission Date: 20221027
  Serious: Yes (Other)
  Sender: FDA-Public Use
  Company Number: None

PATIENT
  Age: 46 Year
  Sex: Male
  Weight: 75 kg

DRUGS (5)
  1. DEXAMETHASONE\FRAMYCETIN SULFATE\GRAMICIDIN [Suspect]
     Active Substance: DEXAMETHASONE\FRAMYCETIN SULFATE\GRAMICIDIN
     Indication: Ear infection
     Dosage: 3 GTT DROPS, Q8H
     Route: 001
     Dates: start: 201808, end: 201808
  2. TRIAMCINOLONE ACETONIDE [Suspect]
     Active Substance: TRIAMCINOLONE ACETONIDE
     Indication: Ear infection
     Dosage: 3 GTT DROPS, Q8H
     Route: 001
     Dates: start: 201206, end: 201808
  3. ACETIC ACID\HYDROCORTISONE [Suspect]
     Active Substance: ACETIC ACID\HYDROCORTISONE
     Indication: Ear infection
     Dosage: 3 GTT DROPS, Q8H
     Route: 001
     Dates: start: 201808, end: 201808
  4. HYDROCORTISONE ACETATE [Concomitant]
     Active Substance: HYDROCORTISONE ACETATE
     Indication: Skin disorder
     Dosage: 1 DF, Q12H
     Dates: start: 2018, end: 2018
  5. MICONAZOLE NITRATE [Concomitant]
     Active Substance: MICONAZOLE NITRATE
     Dosage: UNK USED DURING THE LAST PERIOD
     Dates: start: 2018

REACTIONS (1)
  - Central serous chorioretinopathy [Not Recovered/Not Resolved]

NARRATIVE: CASE EVENT DATE: 20180827
